FAERS Safety Report 21044667 (Version 3)
Quarter: 2022Q3

REPORT INFORMATION
  Report Type: Spontaneous
  Country: RO (occurrence: RO)
  Receive Date: 20220705
  Receipt Date: 20220714
  Transmission Date: 20221027
  Serious: Yes (Hospitalization, Other)
  Sender: FDA-Public Use
  Company Number: RO-NOVARTISPH-NVSC2022RO152437

PATIENT
  Age: 17 Year
  Sex: Female
  Weight: 43 kg

DRUGS (22)
  1. METHOTREXATE [Suspect]
     Active Substance: METHOTREXATE
     Indication: Crohn^s disease
     Dosage: 21 MG, 1 WEEK
     Route: 065
     Dates: start: 20141010, end: 20190108
  2. METHOTREXATE [Suspect]
     Active Substance: METHOTREXATE
     Dosage: 22 MG, 1 WEEK
     Route: 065
     Dates: start: 20190109, end: 20200805
  3. METHOTREXATE [Suspect]
     Active Substance: METHOTREXATE
     Dosage: 22.5 MG, 1 WEEK
     Route: 065
     Dates: start: 20200806, end: 20210427
  4. METHOTREXATE [Suspect]
     Active Substance: METHOTREXATE
     Dosage: 21.5 MG, 1 WEEK
     Route: 065
     Dates: start: 20210428, end: 20210512
  5. HUMIRA [Suspect]
     Active Substance: ADALIMUMAB
     Indication: Crohn^s disease
     Dosage: 80 MG, JUST ONCE, THEN 40 MG EVERY OTHER
     Route: 065
     Dates: start: 20220301, end: 20220411
  6. HUMIRA [Suspect]
     Active Substance: ADALIMUMAB
     Dosage: 40 MG, 2 WEEK
     Route: 065
     Dates: start: 20220503, end: 20220516
  7. AZATHIOPRINE [Suspect]
     Active Substance: AZATHIOPRINE
     Indication: Crohn^s disease
     Dosage: 91.6 MG, QD
     Route: 065
     Dates: start: 20141010, end: 20170417
  8. AZATHIOPRINE [Suspect]
     Active Substance: AZATHIOPRINE
     Dosage: 100 MG, QD
     Route: 065
     Dates: start: 20170418, end: 20170905
  9. AZATHIOPRINE [Suspect]
     Active Substance: AZATHIOPRINE
     Dosage: 108.3 MG, QD
     Route: 065
     Dates: start: 20170906, end: 20180110
  10. AZATHIOPRINE [Suspect]
     Active Substance: AZATHIOPRINE
     Dosage: 100 MG, QD
     Route: 065
     Dates: start: 20180111, end: 20180918
  11. ENTEROL [Concomitant]
     Indication: Antibiotic prophylaxis
     Dosage: 250 MG, QD
     Route: 065
     Dates: start: 20220405, end: 20220411
  12. ENTEROL [Concomitant]
     Indication: Diarrhoea
  13. GRANISETRON [Concomitant]
     Active Substance: GRANISETRON
     Indication: Prophylaxis of nausea and vomiting
     Dosage: 1 MG, QW
     Route: 065
     Dates: start: 20180919
  14. CLARITHROMYCIN [Concomitant]
     Active Substance: CLARITHROMYCIN
     Indication: Upper respiratory tract infection
     Dosage: 500 MG, QD
     Route: 065
     Dates: start: 20220405, end: 20220411
  15. CHOLECALCIFEROL [Concomitant]
     Active Substance: CHOLECALCIFEROL
     Indication: Supplementation therapy
     Dosage: 1000 IU, QD
     Route: 065
     Dates: start: 20210729
  16. FOLIC ACID [Concomitant]
     Active Substance: FOLIC ACID
     Indication: Crohn^s disease
     Dosage: 5 MG, QW (5 MG, 1 WEEK)
     Route: 065
     Dates: start: 20180920
  17. CARBOHYDRATES\FATTY ACIDS\MINERALS\PROTEIN\VITAMINS [Concomitant]
     Active Substance: CARBOHYDRATES\FATTY ACIDS\MINERALS\PROTEIN\VITAMINS
     Indication: Crohn^s disease
     Dosage: 500 ML, QD
     Route: 065
     Dates: start: 20181020, end: 20190402
  18. CARBOHYDRATES\FATTY ACIDS\MINERALS\PROTEIN\VITAMINS [Concomitant]
     Active Substance: CARBOHYDRATES\FATTY ACIDS\MINERALS\PROTEIN\VITAMINS
     Dosage: 500 ML, QD
     Route: 065
     Dates: start: 20190403, end: 20200129
  19. CARBOHYDRATES\FATTY ACIDS\MINERALS\PROTEIN\VITAMINS [Concomitant]
     Active Substance: CARBOHYDRATES\FATTY ACIDS\MINERALS\PROTEIN\VITAMINS
     Dosage: 500 ML, QD
     Route: 065
     Dates: start: 20200215, end: 20200410
  20. CARBOHYDRATES\FATTY ACIDS\MINERALS\PROTEIN\VITAMINS [Concomitant]
     Active Substance: CARBOHYDRATES\FATTY ACIDS\MINERALS\PROTEIN\VITAMINS
     Dosage: 500 ML, QD
     Route: 065
     Dates: start: 20180919, end: 20180919
  21. CARBOHYDRATES\FATTY ACIDS\MINERALS\PROTEIN\VITAMINS [Concomitant]
     Active Substance: CARBOHYDRATES\FATTY ACIDS\MINERALS\PROTEIN\VITAMINS
     Dosage: 500 ML, QD
     Route: 065
     Dates: start: 20200130, end: 20200214
  22. CARBOHYDRATES\FATTY ACIDS\MINERALS\PROTEIN\VITAMINS [Concomitant]
     Active Substance: CARBOHYDRATES\FATTY ACIDS\MINERALS\PROTEIN\VITAMINS
     Dosage: 500 ML, QD
     Route: 065
     Dates: start: 20220411

REACTIONS (1)
  - Abdominal abscess [Recovered/Resolved]

NARRATIVE: CASE EVENT DATE: 20220411
